FAERS Safety Report 22088008 (Version 1)
Quarter: 2023Q1

REPORT INFORMATION
  Report Type: Other
  Country: US (occurrence: None)
  Receive Date: 20230313
  Receipt Date: 20230313
  Transmission Date: 20230417
  Serious: Yes (Hospitalization, Other)
  Sender: FDA-Public Use
  Company Number: US-ROCHE-3058242

PATIENT
  Age: 31 Year
  Sex: Female
  Weight: 99.880 kg

DRUGS (3)
  1. OCREVUS [Suspect]
     Active Substance: OCRELIZUMAB
     Indication: Relapsing-remitting multiple sclerosis
     Dosage: (PRESCRIBED AS INFUSE 300 MG ON DAY 1 AND 15 THEN 600 MG ONCE IN 24 WEEKS)
     Route: 042
     Dates: start: 20220314
  2. SOLU-MEDROL [Concomitant]
     Active Substance: METHYLPREDNISOLONE SODIUM SUCCINATE
  3. IMITREX [Concomitant]
     Active Substance: SUMATRIPTAN SUCCINATE

REACTIONS (9)
  - Migraine [Unknown]
  - Cholecystitis acute [Unknown]
  - Depression [Unknown]
  - Constipation [Unknown]
  - Cholelithiasis [Unknown]
  - Biliary colic [Unknown]
  - Asthenia [Unknown]
  - Speech disorder [Unknown]
  - Polycystic ovaries [Unknown]
